FAERS Safety Report 16317959 (Version 1)
Quarter: 2019Q2

REPORT INFORMATION
  Report Type: Spontaneous
  Country: DE (occurrence: DE)
  Receive Date: 20190516
  Receipt Date: 20190516
  Transmission Date: 20190711
  Serious: Yes (Disabling)
  Sender: FDA-Public Use
  Company Number: DE-DRREDDYS-GER/GER/19/0110111

PATIENT
  Age: 41 Year
  Sex: Female
  Weight: 62 kg

DRUGS (2)
  1. CIPROFLOXACIN. [Suspect]
     Active Substance: CIPROFLOXACIN
     Indication: COUGH
     Dosage: 2X 250 MG
     Route: 048
     Dates: start: 20121213, end: 20121217
  2. CIPROFLOXACIN. [Suspect]
     Active Substance: CIPROFLOXACIN
     Indication: BRONCHITIS

REACTIONS (10)
  - Stress [Not Recovered/Not Resolved]
  - Fatigue [Unknown]
  - Impaired work ability [Not Recovered/Not Resolved]
  - Depression [Not Recovered/Not Resolved]
  - Adverse reaction [Not Recovered/Not Resolved]
  - Exercise lack of [Not Recovered/Not Resolved]
  - Insomnia [Unknown]
  - Muscular weakness [Not Recovered/Not Resolved]
  - Asthma [Unknown]
  - Tinnitus [Unknown]

NARRATIVE: CASE EVENT DATE: 2013
